FAERS Safety Report 12699069 (Version 3)
Quarter: 2016Q4

REPORT INFORMATION
  Report Type: Spontaneous
  Country: GB (occurrence: GB)
  Receive Date: 20160830
  Receipt Date: 20161019
  Transmission Date: 20170207
  Serious: Yes (Disabling)
  Sender: FDA-Public Use
  Company Number: GB-MYLANLABS-2016M1036059

PATIENT

DRUGS (9)
  1. ISOTRETINOIN [Suspect]
     Active Substance: ISOTRETINOIN
     Dosage: 60 MG, QD
     Dates: start: 201602, end: 20160516
  2. ACETYLCYSTEINE. [Concomitant]
     Active Substance: ACETYLCYSTEINE
     Dosage: UNK
  3. MIRTAZAPINE. [Concomitant]
     Active Substance: MIRTAZAPINE
     Indication: ILL-DEFINED DISORDER
     Dosage: UNK
  4. MIRTAZAPINE. [Concomitant]
     Active Substance: MIRTAZAPINE
     Indication: ANXIETY
     Dosage: UNK
     Dates: start: 20160713
  5. PROPRANOLOL [Concomitant]
     Active Substance: PROPRANOLOL\PROPRANOLOL HYDROCHLORIDE
     Indication: ANXIETY
     Dosage: 10 MEQ, QD
     Dates: start: 20160426
  6. ISOTRETINOIN [Suspect]
     Active Substance: ISOTRETINOIN
     Indication: ROSACEA
     Dosage: 40 MG, QD
     Dates: start: 20160116, end: 201602
  7. ZOPICLONE [Concomitant]
     Active Substance: ZOPICLONE
     Indication: INSOMNIA
     Dosage: 1 DF, QD (1 AT NIGHT)
     Dates: start: 20160315
  8. PROBIOTIC                          /06395501/ [Concomitant]
     Active Substance: BIFIDOBACTERIUM ANIMALIS SUBSP. LACTIS
     Indication: ILL-DEFINED DISORDER
     Dosage: 1 DF, QD
  9. BRIMONIDINE [Concomitant]
     Active Substance: BRIMONIDINE TARTRATE
     Indication: OCULAR ROSACEA
     Dosage: 1 DF, QD
     Dates: start: 20160122

REACTIONS (12)
  - Vital dye staining cornea present [Unknown]
  - Hyperhidrosis [Recovering/Resolving]
  - Conjunctival disorder [Not Recovered/Not Resolved]
  - Lip dry [Not Recovered/Not Resolved]
  - Conjunctival hyperaemia [Unknown]
  - Acne [Unknown]
  - Eye pain [Unknown]
  - Hyperaesthesia [Recovering/Resolving]
  - Oral mucosal erythema [Unknown]
  - Dry eye [Not Recovered/Not Resolved]
  - Dry skin [Recovering/Resolving]
  - Meibomian gland dysfunction [Unknown]
